FAERS Safety Report 9925433 (Version 1)
Quarter: 2014Q1

REPORT INFORMATION
  Report Type: Spontaneous
  Country: US (occurrence: None)
  Receive Date: 20140225
  Receipt Date: 20140225
  Transmission Date: 20141002
  Serious: Yes (Hospitalization)
  Sender: FDA-Public Use
  Company Number: None

PATIENT
  Age: 43 Year
  Sex: Male
  Weight: 64.4 kg

DRUGS (4)
  1. RITUXIMAB [Suspect]
     Dosage: GIVEN ON DAY 15 PRE TRANSPLANT?X 1 INFUSED OVER 6H
     Dates: start: 20140121
  2. CELLCEPT [Concomitant]
  3. TACROLIMUS [Concomitant]
  4. PREDNISONE [Concomitant]

REACTIONS (3)
  - Abdominal pain lower [None]
  - Constipation [None]
  - Oedema [None]
